FAERS Safety Report 11091512 (Version 1)
Quarter: 2015Q2

REPORT INFORMATION
  Report Type: Spontaneous
  Country: US (occurrence: US)
  Receive Date: 20150505
  Receipt Date: 20150505
  Transmission Date: 20150821
  Serious: Yes (Other)
  Sender: FDA-Public Use
  Company Number: US-PFIZER INC-2015145965

PATIENT
  Age: 55 Year
  Sex: Female
  Weight: 95 kg

DRUGS (6)
  1. NORCO [Concomitant]
     Active Substance: ACETAMINOPHEN\HYDROCODONE BITARTRATE
     Dosage: 10 MG, 4X/DAY
     Route: 048
  2. COZAAR [Concomitant]
     Active Substance: LOSARTAN POTASSIUM
     Dosage: 75 MG, DAILY
  3. ROBAXIN [Concomitant]
     Active Substance: METHOCARBAMOL
     Dosage: 750 MG, 4X/DAY
     Route: 048
  4. TOPROL XL [Concomitant]
     Active Substance: METOPROLOL SUCCINATE
     Dosage: 25 MG, 2X/DAY
     Route: 048
  5. LASIX [Concomitant]
     Active Substance: FUROSEMIDE
     Dosage: 20 MG, ONCE DAILY, BUT DON^T TAKE EVERYDAY TAKE IT ONCE A
     Route: 048
  6. GABAPENTIN. [Suspect]
     Active Substance: GABAPENTIN
     Indication: NEURALGIA

REACTIONS (9)
  - Drug ineffective for unapproved indication [Unknown]
  - Fear [Unknown]
  - Suicidal ideation [Unknown]
  - Psychotic disorder [Unknown]
  - Thinking abnormal [Unknown]
  - Weight increased [Unknown]
  - Anxiety [Unknown]
  - Anger [Unknown]
  - Agitation [Unknown]
